FAERS Safety Report 7166774-4 (Version None)
Quarter: 2010Q4

REPORT INFORMATION
  Report Type: 
  Country: None (occurrence: None)
  Receive Date: 20101216
  Receipt Date: 20101202
  Transmission Date: 20110411
  Serious: Yes (Other)
  Sender: FDA-Public Use
  Company Number: US-ROCHE-746408

PATIENT
  Sex: Female
  Weight: 77 kg

DRUGS (6)
  1. TRASTUZUMAB [Suspect]
     Indication: BREAST CANCER
     Dosage: LOADING DOSE OF HERCEPTIN
     Route: 042
     Dates: start: 20090424
  2. TRASTUZUMAB [Suspect]
     Dosage: MAINTANCE DOSE, THREE WEEKS LATER. LAST DOSE PRIOR TO SAE:30 JUNE 2010
     Route: 042
  3. TAMOXIFEN CITRATE [Suspect]
     Indication: BREAST CANCER
     Dosage: FREQUENCY REPORTED AS DAILY
     Route: 048
     Dates: start: 20100301, end: 20100701
  4. CARBOPLATIN [Suspect]
     Indication: BREAST CANCER
     Dosage: DOSE : 6 AUC. LAST DOSE PRIOR TO SAE WAS 18 AUGUST 2009
     Route: 042
     Dates: start: 20090424
  5. IXABEPILONE [Suspect]
     Indication: BREAST CANCER
     Dosage: LAST DOSE PRIOR TO SAE: 18 AUGUST 2009
     Route: 042
     Dates: start: 20090424
  6. EFFEXOR XR [Concomitant]
     Dosage: FREQUENCY REPORTED AS DAILY
     Dates: start: 20101112

REACTIONS (3)
  - ABORTION SPONTANEOUS [None]
  - DRUG EXPOSURE DURING PREGNANCY [None]
  - PREGNANCY [None]
